FAERS Safety Report 10382936 (Version 2)
Quarter: 2018Q4

REPORT INFORMATION
  Report Type: Report from Study
  Country: US (occurrence: US)
  Receive Date: 20140813
  Receipt Date: 20181030
  Transmission Date: 20190204
  Serious: Yes (Other)
  Sender: FDA-Public Use
  Company Number: US-SA-2014SA053766

PATIENT
  Sex: Female
  Weight: 120.2 kg

DRUGS (3)
  1. AGALSIDASE BETA [Suspect]
     Active Substance: AGALSIDASE BETA
     Indication: FABRY^S DISEASE
     Dosage: .91 MG/KG,QOW
     Route: 041
     Dates: start: 20120228, end: 201602
  2. TEGRETOL [Concomitant]
     Active Substance: CARBAMAZEPINE
     Indication: PAIN
     Dosage: 800 MG,QD
     Route: 065
  3. AGALSIDASE BETA [Suspect]
     Active Substance: AGALSIDASE BETA
     Dosage: .91 MG/KG,QOW
     Route: 041
     Dates: start: 2016

REACTIONS (12)
  - Pain [Unknown]
  - Exposure during pregnancy [Unknown]
  - Malaise [Unknown]
  - Tooth infection [Unknown]
  - Chills [Unknown]
  - Bronchitis [Recovering/Resolving]
  - Abdominal discomfort [Unknown]
  - Gestational diabetes [Unknown]
  - Pyrexia [Unknown]
  - Cholelithiasis [Recovering/Resolving]
  - Nasopharyngitis [Unknown]
  - Tooth fracture [Unknown]

NARRATIVE: CASE EVENT DATE: 2016
